FAERS Safety Report 6265515-2 (Version None)
Quarter: 2009Q3

REPORT INFORMATION
  Report Type: 
  Country: None (occurrence: None)
  Receive Date: 20090709
  Receipt Date: 20090709
  Transmission Date: 20100115
  Serious: No
  Sender: FDA-Public Use
  Company Number: None

PATIENT
  Age: 33 Year
  Sex: Female
  Weight: 56.6996 kg

DRUGS (2)
  1. FLONASE [Suspect]
     Indication: MULTIPLE ALLERGIES
     Dosage: 1 PUFF ONCE DAILY NASAL OFF + ON FOR LAST 5 YEARS
     Route: 045
  2. ZICAM NASAL GEL MATRIXX [Suspect]
     Indication: PROPHYLAXIS
     Dosage: 1 SPRAY EVERY 4 HOURS NASAL OFF + ON FOR LAST 3 YEARS
     Route: 045

REACTIONS (1)
  - ANOSMIA [None]
